FAERS Safety Report 4940428-4 (Version None)
Quarter: 2006Q1

REPORT INFORMATION
  Report Type: 
  Country: None (occurrence: None)
  Receive Date: 20060131
  Receipt Date: 20051223
  Transmission Date: 20060701
  Serious: No
  Sender: FDA-Public Use
  Company Number: 200520952US

PATIENT

DRUGS (1)
  1. KETEK [Suspect]
     Dosage: PO
     Route: 048

REACTIONS (2)
  - DRUG ADMINISTRATION ERROR [None]
  - OVERDOSE [None]
